FAERS Safety Report 18624899 (Version 1)
Quarter: 2020Q4

REPORT INFORMATION
  Report Type: Spontaneous
  Country: US (occurrence: US)
  Receive Date: 20201216
  Receipt Date: 20201216
  Transmission Date: 20210114
  Serious: Yes (Hospitalization)
  Sender: FDA-Public Use
  Company Number: US-JNJFOC-20201222502

PATIENT
  Age: 26 Year
  Sex: Female

DRUGS (1)
  1. TOPAMAX [Suspect]
     Active Substance: TOPIRAMATE
     Indication: MIGRAINE
     Route: 048

REACTIONS (3)
  - Chorioretinal folds [Recovered/Resolved]
  - Flat anterior chamber of eye [Recovered/Resolved]
  - Blindness transient [Recovered/Resolved]
